FAERS Safety Report 9167589 (Version 1)
Quarter: 2013Q1

REPORT INFORMATION
  Report Type: Spontaneous
  Country: US (occurrence: None)
  Receive Date: 20130225
  Receipt Date: 20130225
  Transmission Date: 20140127
  Serious: Yes (Other)
  Sender: FDA-Public Use
  Company Number: 2013034817

PATIENT
  Age: 14 Year
  Sex: Male

DRUGS (1)
  1. IVIG [Suspect]
     Indication: IMMUNODEFICIENCY COMMON VARIABLE

REACTIONS (3)
  - Deep vein thrombosis [None]
  - Condition aggravated [None]
  - Cutaneous vasculitis [None]
